FAERS Safety Report 9957265 (Version 1)
Quarter: 2014Q1

REPORT INFORMATION
  Report Type: Report from Study
  Country: US (occurrence: US)
  Receive Date: 20140304
  Receipt Date: 20140304
  Transmission Date: 20141002
  Serious: No
  Sender: FDA-Public Use
  Company Number: US-ABBVIE-13P-163-1097866-00

PATIENT
  Age: 63 Year
  Sex: Female

DRUGS (16)
  1. HUMIRA [Suspect]
     Indication: CROHN^S DISEASE
     Dates: start: 20130501
  2. NORVASC [Concomitant]
     Indication: BLOOD PRESSURE
     Dosage: 1 DAILY
  3. VITAMIN D [Concomitant]
     Indication: PRODUCT USED FOR UNKNOWN INDICATION
  4. KLONOPIN [Concomitant]
     Indication: ANXIETY
  5. LOMOTIL [Concomitant]
     Indication: DIARRHOEA
     Dosage: 4 TIMES PER DAY
  6. LORTAB [Concomitant]
     Indication: PAIN
     Dosage: EVERY 6-8 HOURS
  7. LEVSIN/SL [Concomitant]
     Indication: ABDOMINAL RIGIDITY
     Dosage: 1 DAILY
  8. SYNTHROID [Concomitant]
     Indication: THYROID DISORDER
     Dosage: 1 DAILY
  9. CREON [Concomitant]
     Indication: PANCREATITIS
     Dosage: 2 TABS BEFORE MEALS, 1 WITH SNACK IN PM
  10. PRILOSEC [Concomitant]
     Indication: GASTROOESOPHAGEAL REFLUX DISEASE
  11. POTASSIUM CHLORIDE [Concomitant]
     Indication: BLOOD POTASSIUM DECREASED
  12. PROMETHAZINE [Concomitant]
     Indication: NAUSEA
     Dosage: EVERY 6-8 HOURS
  13. ZOLOFT [Concomitant]
     Indication: DEPRESSION
     Dosage: 100MG DAILY
  14. CARAFATE [Concomitant]
     Indication: PRODUCT USED FOR UNKNOWN INDICATION
  15. ZANAFLEX [Concomitant]
     Indication: MUSCLE SPASMS
  16. TRAZODONE [Concomitant]
     Indication: INSOMNIA
     Dosage: AT SLEEP

REACTIONS (1)
  - Fatigue [Recovered/Resolved]
